FAERS Safety Report 6985827-4 (Version None)
Quarter: 2010Q3

REPORT INFORMATION
  Report Type: 
  Country: None (occurrence: None)
  Receive Date: 20100915
  Receipt Date: 20100910
  Transmission Date: 20110219
  Serious: Yes (Other)
  Sender: FDA-Public Use
  Company Number: CN-BAYER-201037673GPV

PATIENT
  Age: 71 Year
  Sex: Female

DRUGS (4)
  1. ASPIRIN [Suspect]
     Indication: PRODUCT USED FOR UNKNOWN INDICATION
     Dosage: TOTAL DAILY DOSE: 100 MG
     Route: 048
  2. LAILIXIN [Interacting]
     Indication: URINARY TRACT INFECTION
     Dosage: TOTAL DAILY DOSE: 100 ML
     Route: 041
  3. LIPITOR [Concomitant]
     Dosage: TOTAL DAILY DOSE: 20 MG
     Route: 048
  4. NOVOLIN R [Concomitant]

REACTIONS (3)
  - CONVULSIONS LOCAL [None]
  - HEADACHE [None]
  - INSOMNIA [None]
